FAERS Safety Report 7705823-9 (Version None)
Quarter: 2011Q3

REPORT INFORMATION
  Report Type: 
  Country: None (occurrence: None)
  Receive Date: 20110824
  Receipt Date: 20110812
  Transmission Date: 20111222
  Serious: Yes (Hospitalization)
  Sender: FDA-Public Use
  Company Number: US-ELI_LILLY_AND_COMPANY-US201108004972

PATIENT
  Sex: Female

DRUGS (6)
  1. STRATTERA [Suspect]
     Indication: ATTENTION DEFICIT/HYPERACTIVITY DISORDER
     Dosage: 10 MG, UNK
     Dates: start: 20110601
  2. STRATTERA [Suspect]
     Dosage: 20 MG, UNK
     Dates: start: 20110729
  3. STRATTERA [Suspect]
     Dosage: 10 MG, UNK
     Dates: start: 20110730
  4. STRATTERA [Suspect]
     Dosage: 10 MG, UNK
     Dates: start: 20110731
  5. STRATTERA [Suspect]
     Dosage: 10 MG, UNK
     Dates: start: 20110802, end: 20110802
  6. STRATTERA [Suspect]
     Dosage: 30 MG, UNK
     Dates: start: 20110801, end: 20110802

REACTIONS (9)
  - PALLOR [None]
  - UNDERDOSE [None]
  - SYNCOPE [None]
  - CONVERSION DISORDER [None]
  - NAUSEA [None]
  - DROP ATTACKS [None]
  - FATIGUE [None]
  - MALAISE [None]
  - CONSCIOUSNESS FLUCTUATING [None]
